FAERS Safety Report 12611134 (Version 6)
Quarter: 2020Q3

REPORT INFORMATION
  Report Type: Spontaneous
  Country: US (occurrence: US)
  Receive Date: 20160801
  Receipt Date: 20200804
  Transmission Date: 20201102
  Serious: Yes (Death, Hospitalization, Other)
  Sender: FDA-Public Use
  Company Number: US-SA-2016SA137818

PATIENT

DRUGS (1)
  1. CEREZYME [Suspect]
     Active Substance: IMIGLUCERASE
     Indication: GAUCHER^S DISEASE
     Dosage: 2000 U, QOW
     Route: 041
     Dates: start: 20101116

REACTIONS (5)
  - Unevaluable event [Unknown]
  - Brain cancer metastatic [Fatal]
  - Dysphonia [Unknown]
  - Hypokinesia [Fatal]
  - Gait disturbance [Unknown]

NARRATIVE: CASE EVENT DATE: 2016
